FAERS Safety Report 18707094 (Version 1)
Quarter: 2021Q1

REPORT INFORMATION
  Report Type: Spontaneous
  Country: US (occurrence: US)
  Receive Date: 20210106
  Receipt Date: 20210106
  Transmission Date: 20210419
  Serious: No
  Sender: FDA-Public Use
  Company Number: None

PATIENT
  Age: 72 Year
  Sex: Female
  Weight: 51.75 kg

DRUGS (9)
  1. PROBIOTIC [Concomitant]
     Active Substance: PROBIOTICS NOS
  2. VITAMIN B12 [Concomitant]
     Active Substance: CYANOCOBALAMIN
  3. ASPIRIN 81MG [Concomitant]
     Active Substance: ASPIRIN
  4. TUMS EXTRA STRENGTH 750MG [Concomitant]
  5. CAPECITABINE. [Suspect]
     Active Substance: CAPECITABINE
     Indication: COLON CANCER
     Route: 048
     Dates: start: 20201120
  6. ATENOLOL 25MG [Concomitant]
     Active Substance: ATENOLOL
  7. BUSPIRONE [Concomitant]
     Active Substance: BUSPIRONE HYDROCHLORIDE
  8. MULTIVITAMIN [Concomitant]
     Active Substance: VITAMINS
  9. OMEGA 3 500MG [Concomitant]

REACTIONS (3)
  - Nasal congestion [None]
  - Epistaxis [None]
  - Nasal crusting [None]

NARRATIVE: CASE EVENT DATE: 20210106
